FAERS Safety Report 7211426-5 (Version None)
Quarter: 2010Q4

REPORT INFORMATION
  Report Type: 
  Country: None (occurrence: None)
  Receive Date: 20101223
  Receipt Date: 20101213
  Transmission Date: 20110411
  Serious: Yes (Hospitalization)
  Sender: FDA-Public Use
  Company Number: 023690

PATIENT
  Sex: Female
  Weight: 48.7 kg

DRUGS (3)
  1. VIMPAT [Suspect]
     Indication: EPILEPSY
     Dosage: (100 MG QD ORAL
     Route: 048
     Dates: start: 20100716, end: 20100805
  2. KEPPRA [Concomitant]
  3. LORAZEPAM [Concomitant]

REACTIONS (4)
  - BLOOD LACTIC ACID INCREASED [None]
  - DIPLOPIA [None]
  - GRAND MAL CONVULSION [None]
  - VITH NERVE PARALYSIS [None]
